FAERS Safety Report 16629059 (Version 1)
Quarter: 2019Q3

REPORT INFORMATION
  Report Type: Spontaneous
  Country: ES (occurrence: ES)
  Receive Date: 20190725
  Receipt Date: 20190725
  Transmission Date: 20191004
  Serious: Yes (Other)
  Sender: FDA-Public Use
  Company Number: ES-GLAXOSMITHKLINE-ES2019134229

PATIENT
  Age: 7 Month
  Sex: Female
  Weight: 6 kg

DRUGS (3)
  1. VENTOLIN [Suspect]
     Active Substance: ALBUTEROL SULFATE
     Indication: BRONCHOSPASM
     Dosage: 200MCG / 3 TIMES A DAY
     Route: 055
     Dates: start: 20190716
  2. VITAMINA D3 [Concomitant]
     Active Substance: CHOLECALCIFEROL
     Indication: PROPHYLAXIS
     Dosage: 0.2 ML, QD
     Route: 048
     Dates: start: 20181220, end: 20190716
  3. APIRETAL [Concomitant]
     Active Substance: ACETAMINOPHEN
     Indication: PYREXIA
     Dosage: 1ML / 6 HOURS WHEN THERE WAS FEVER OR DISCOMFORT OF THE TEETH; AS NECESSARY
     Route: 048
     Dates: start: 20190701, end: 20190715

REACTIONS (1)
  - Hypothermia [Recovered/Resolved]

NARRATIVE: CASE EVENT DATE: 20190716
